FAERS Safety Report 9068284 (Version 2)
Quarter: 2013Q1

REPORT INFORMATION
  Report Type: Spontaneous
  Country: DE (occurrence: DE)
  Receive Date: 20130206
  Receipt Date: 20130315
  Transmission Date: 20140127
  Serious: Yes (Death, Hospitalization, Other)
  Sender: FDA-Public Use
  Company Number: DE-JNJFOC-20130201065

PATIENT
  Age: 80 None
  Sex: Female
  Weight: 66 kg

DRUGS (11)
  1. XARELTO [Suspect]
     Indication: CEREBROVASCULAR ACCIDENT PROPHYLAXIS
     Route: 048
     Dates: start: 20121029
  2. XARELTO [Suspect]
     Indication: CEREBROVASCULAR ACCIDENT PROPHYLAXIS
     Route: 048
     Dates: start: 201207
  3. XARELTO [Suspect]
     Indication: ATRIAL FIBRILLATION
     Route: 048
     Dates: start: 201207
  4. XARELTO [Suspect]
     Indication: ATRIAL FIBRILLATION
     Route: 048
     Dates: start: 20121029
  5. GEMCITABINE [Concomitant]
     Route: 065
     Dates: start: 20121119, end: 20121119
  6. GEMCITABINE [Concomitant]
     Route: 065
     Dates: start: 20121112, end: 20121112
  7. BISOPROLOL [Concomitant]
     Route: 065
  8. SITAGLIPTIN [Concomitant]
     Route: 065
  9. RAMIPRIL [Concomitant]
     Dosage: 5/25 MG
     Route: 065
  10. PANTOPRAZOLE [Concomitant]
     Route: 065
  11. INSULIN [Concomitant]
     Dosage: 20-0-10
     Route: 065

REACTIONS (5)
  - Pulmonary embolism [Fatal]
  - Bundle branch block left [Fatal]
  - Faeces discoloured [Unknown]
  - Haemorrhagic erosive gastritis [Unknown]
  - Drug ineffective [Unknown]
